FAERS Safety Report 11024670 (Version 1)
Quarter: 2015Q2

REPORT INFORMATION
  Report Type: Spontaneous
  Country: US (occurrence: US)
  Receive Date: 20150414
  Receipt Date: 20150414
  Transmission Date: 20150821
  Serious: Yes (Death)
  Sender: FDA-Public Use
  Company Number: US-JNJFOC-20140500568

PATIENT
  Sex: Male

DRUGS (1)
  1. DESITIN [Suspect]
     Active Substance: ZINC OXIDE
     Indication: DERMATITIS DIAPER
     Route: 061

REACTIONS (1)
  - Death [Fatal]
